FAERS Safety Report 12063111 (Version 1)
Quarter: 2016Q1

REPORT INFORMATION
  Report Type: Spontaneous
  Country: US (occurrence: US)
  Receive Date: 20160210
  Receipt Date: 20160210
  Transmission Date: 20160526
  Serious: No
  Sender: FDA-Public Use
  Company Number: CHPA2016US001989

PATIENT
  Age: 88 Year
  Sex: Female

DRUGS (3)
  1. VOLTAREN [Suspect]
     Active Substance: DICLOFENAC SODIUM
     Indication: PAIN IN EXTREMITY
  2. VOLTAREN [Suspect]
     Active Substance: DICLOFENAC SODIUM
     Indication: BURNING SENSATION
     Dosage: SQUIRT THE GEL ON THE FINGER, MORNING AND THEN JUST BEFORE BED
     Route: 065
     Dates: start: 201601, end: 201601
  3. VOLTAREN [Suspect]
     Active Substance: DICLOFENAC SODIUM
     Indication: PAIN
     Dosage: LITTLE BIT OF INDEX FINGER, ONCE/SINGLE
     Route: 065
     Dates: start: 20160208

REACTIONS (7)
  - Inappropriate schedule of drug administration [Unknown]
  - Pain in extremity [Recovering/Resolving]
  - Disease recurrence [Recovering/Resolving]
  - Therapeutic response unexpected [Unknown]
  - Wrong technique in product usage process [Unknown]
  - Peripheral swelling [Recovered/Resolved]
  - Drug administered at inappropriate site [Unknown]

NARRATIVE: CASE EVENT DATE: 201601
